FAERS Safety Report 19682697 (Version 4)
Quarter: 2021Q4

REPORT INFORMATION
  Report Type: Spontaneous
  Country: US (occurrence: US)
  Receive Date: 20210811
  Receipt Date: 20211015
  Transmission Date: 20220303
  Serious: No
  Sender: FDA-Public Use
  Company Number: US-ORGANON-O2108USA000559

PATIENT
  Age: 24 Year
  Sex: Female
  Weight: 81 kg

DRUGS (2)
  1. NEXPLANON [Suspect]
     Active Substance: ETONOGESTREL
     Dosage: 1 DOSAGE FORM IN LEFT ARM INTO THE NEW LOCATION
     Dates: start: 20210701
  2. NEXPLANON [Suspect]
     Active Substance: ETONOGESTREL
     Dosage: 1 DOSAGE FORM IN RIGHT ARM
     Dates: start: 202107

REACTIONS (6)
  - Implant site haematoma [Unknown]
  - Complication associated with device [Unknown]
  - Device placement issue [Unknown]
  - Overdose [Unknown]
  - Device use issue [Unknown]
  - Product dose omission issue [Unknown]

NARRATIVE: CASE EVENT DATE: 20210701
